FAERS Safety Report 11364366 (Version 1)
Quarter: 2015Q3

REPORT INFORMATION
  Report Type: Spontaneous
  Country: US (occurrence: US)
  Receive Date: 20150811
  Receipt Date: 20150811
  Transmission Date: 20151125
  Serious: No
  Sender: FDA-Public Use
  Company Number: US-PFIZER INC-2015253934

PATIENT
  Sex: Female

DRUGS (2)
  1. EMBEDA [Suspect]
     Active Substance: MORPHINE SULFATE\NALTREXONE HYDROCHLORIDE
     Dosage: 80 MG, 2X/DAY
  2. AVINZA [Suspect]
     Active Substance: MORPHINE SULFATE
     Dosage: 90 MG, 3X/DAY

REACTIONS (1)
  - Nausea [Unknown]
